FAERS Safety Report 15274798 (Version 2)
Quarter: 2018Q3

REPORT INFORMATION
  Report Type: Spontaneous
  Country: US (occurrence: US)
  Receive Date: 20180814
  Receipt Date: 20180816
  Transmission Date: 20181010
  Serious: Yes (Hospitalization, Other)
  Sender: FDA-Public Use
  Company Number: US-ROCHE-2167654

PATIENT
  Age: 77 Year
  Sex: Male
  Weight: 59.02 kg

DRUGS (4)
  1. PREDNISONE. [Concomitant]
     Active Substance: PREDNISONE
     Dosage: ONGOING:NO
     Route: 065
  2. ALECENSA [Suspect]
     Active Substance: ALECTINIB HYDROCHLORIDE
     Indication: LUNG NEOPLASM MALIGNANT
     Dosage: ONGOING:NO
     Route: 048
     Dates: start: 20180630
  3. ALECENSA [Suspect]
     Active Substance: ALECTINIB HYDROCHLORIDE
     Dosage: ONGOING:NO
     Route: 048
     Dates: start: 20180711, end: 20180728
  4. PREDNISONE. [Concomitant]
     Active Substance: PREDNISONE
     Dosage: 4 TABS, THEN TAPER DOWN ;ONGOING: YES
     Route: 048

REACTIONS (4)
  - Dyspnoea [Recovered/Resolved]
  - Pulmonary oedema [Recovered/Resolved]
  - Pneumonitis [Recovering/Resolving]
  - Pericardial effusion [Recovered/Resolved]

NARRATIVE: CASE EVENT DATE: 20180728
